FAERS Safety Report 4377377-9 (Version None)
Quarter: 2004Q2

REPORT INFORMATION
  Report Type: 
  Country: None (occurrence: None)
  Receive Date: 20040614
  Receipt Date: 20040614
  Transmission Date: 20050107
  Serious: No
  Sender: FDA-Public Use
  Company Number: None

PATIENT
  Age: 70 Year
  Sex: Female
  Weight: 83.9154 kg

DRUGS (2)
  1. CLOBETASOL PROPIONATE [Suspect]
     Indication: SKIN LESION
     Dosage: 2 X PER FOR 2 MO P TOPICAL
     Route: 061
     Dates: start: 20031010, end: 20031218
  2. GLUCOPHAGE [Concomitant]

REACTIONS (4)
  - ERYTHEMA [None]
  - ROSACEA [None]
  - SKIN DISCOLOURATION [None]
  - SQUAMOUS CELL CARCINOMA OF SKIN [None]
